FAERS Safety Report 8106725-9 (Version None)
Quarter: 2012Q1

REPORT INFORMATION
  Report Type: 
  Country: None (occurrence: None)
  Receive Date: 20120130
  Receipt Date: 20120118
  Transmission Date: 20120608
  Serious: Yes (Other)
  Sender: FDA-Public Use
  Company Number: 2012AP000163

PATIENT
  Age: 77 Year
  Sex: Male

DRUGS (5)
  1. LOSARTAN POTASSIUM [Suspect]
     Indication: HYPERTENSION
  2. PEMETREXED [Suspect]
     Indication: LUNG ADENOCARCINOMA
     Dosage: 500 MG/M**2 375 MG/M**2
  3. CARBOPLATIN [Concomitant]
  4. AMLODIPINE [Concomitant]
  5. BEVACIZUMAB [Concomitant]

REACTIONS (7)
  - RENAL INJURY [None]
  - PROTEINURIA [None]
  - RENAL TUBULAR DISORDER [None]
  - INFLAMMATION [None]
  - BLOOD CREATININE INCREASED [None]
  - KIDNEY FIBROSIS [None]
  - RENAL ARTERIOSCLEROSIS [None]
